FAERS Safety Report 6529516-9 (Version None)
Quarter: 2010Q1

REPORT INFORMATION
  Report Type: 
  Country: None (occurrence: None)
  Receive Date: 20100104
  Receipt Date: 20091214
  Transmission Date: 20100710
  Serious: Yes (Hospitalization)
  Sender: FDA-Public Use
  Company Number: DSA_42262_2009

PATIENT
  Age: 71 Year
  Sex: Female

DRUGS (2)
  1. DILTIAZEM HCL [Suspect]
     Indication: HYPERTENSION
     Dosage: (DF)
  2. CALCIUM CHANNEL BLOCKERS [Concomitant]

REACTIONS (8)
  - ACUTE GENERALISED EXANTHEMATOUS PUSTULOSIS [None]
  - ALANINE AMINOTRANSFERASE INCREASED [None]
  - ANAEMIA [None]
  - ASPARTATE AMINOTRANSFERASE INCREASED [None]
  - HYPOKALAEMIA [None]
  - LEUKOCYTOSIS [None]
  - MALAISE [None]
  - ORAL HERPES [None]
